FAERS Safety Report 15456371 (Version 1)
Quarter: 2018Q4

REPORT INFORMATION
  Report Type: Spontaneous
  Country: US (occurrence: US)
  Receive Date: 20181002
  Receipt Date: 20181002
  Transmission Date: 20190204
  Serious: Yes (Hospitalization, Other)
  Sender: FDA-Public Use
  Company Number: US-PFIZER INC-2018389890

PATIENT
  Age: 18 Year
  Sex: Male

DRUGS (3)
  1. BENEFIX [Suspect]
     Active Substance: COAGULATION FACTOR IX RECOMBINANT HUMAN\ISOPROPYL ALCOHOL
     Indication: FACTOR IX DEFICIENCY
     Dosage: 6000 IU, UNK (BOLUS RFIX INFUSION OF 6000 UNITS OVER 3 H)
     Route: 040
  2. BENEFIX [Suspect]
     Active Substance: COAGULATION FACTOR IX RECOMBINANT HUMAN\ISOPROPYL ALCOHOL
     Dosage: UNK, DAILY (DAILY INFUSIONS WERE EXTENDED TO 4 TO 6 H)
  3. BENEFIX [Suspect]
     Active Substance: COAGULATION FACTOR IX RECOMBINANT HUMAN\ISOPROPYL ALCOHOL
     Dosage: UNK, (CONTINUOUS INFUSION OF RFIX DELIVERING 333 UNITS PER HOUR)

REACTIONS (3)
  - Device related infection [Unknown]
  - Anaphylactic reaction [Recovered/Resolved]
  - Drug tolerance [Unknown]
